FAERS Safety Report 13547044 (Version 5)
Quarter: 2017Q3

REPORT INFORMATION
  Report Type: Spontaneous
  Country: ES (occurrence: ES)
  Receive Date: 20170515
  Receipt Date: 20170807
  Transmission Date: 20171127
  Serious: Yes (Hospitalization)
  Sender: FDA-Public Use
  Company Number: ES-SA-2017SA082390

PATIENT
  Age: 37 Year
  Sex: Male

DRUGS (4)
  1. LEVETIRACETAM. [Concomitant]
     Active Substance: LEVETIRACETAM
     Indication: EPILEPSY
     Route: 048
     Dates: start: 20150103
  2. OMEPRAZOLE. [Concomitant]
     Active Substance: OMEPRAZOLE
  3. LEMTRADA [Suspect]
     Active Substance: ALEMTUZUMAB
     Indication: RELAPSING-REMITTING MULTIPLE SCLEROSIS
     Dosage: PRIMER CICLO JULIO 2015: 5 DOSISSEGUNDO CICLO JULIO 2016: 3 DOSIS?FIRST CYCLE: JULY 2015: 5 DOSES
     Route: 041
     Dates: start: 20150706, end: 20150710
  4. LEMTRADA [Suspect]
     Active Substance: ALEMTUZUMAB
     Indication: RELAPSING-REMITTING MULTIPLE SCLEROSIS
     Dosage: PRIMER CICLO JULIO 2015: 5 DOSISSEGUNDO CICLO JULIO 2016: 3 DOSIS?SECOND CYCLE JULY 2016: 3 DOSES
     Route: 041
     Dates: start: 20160706, end: 20160708

REACTIONS (10)
  - Immune thrombocytopenic purpura [Recovering/Resolving]
  - Haemoptysis [Recovered/Resolved]
  - Epistaxis [Recovering/Resolving]
  - Thrombocytopenia [Recovered/Resolved]
  - Contusion [Recovered/Resolved]
  - Oropharyngeal plaque [Recovered/Resolved]
  - Platelet count decreased [Recovering/Resolving]
  - Haematoma [Recovered/Resolved]
  - Oral mucosal blistering [Recovering/Resolving]
  - Gingival bleeding [Recovered/Resolved]

NARRATIVE: CASE EVENT DATE: 20170417
